FAERS Safety Report 11754414 (Version 1)
Quarter: 2015Q4

REPORT INFORMATION
  Report Type: Spontaneous
  Country: US (occurrence: None)
  Receive Date: 20151118
  Receipt Date: 20151118
  Transmission Date: 20160304
  Serious: Yes (Other)
  Sender: FDA-Public Use
  Company Number: None

PATIENT
  Age: 69 Year
  Sex: Male
  Weight: 99.79 kg

DRUGS (10)
  1. PACEMAKER [Concomitant]
  2. FINASTERIDE. [Concomitant]
     Active Substance: FINASTERIDE
  3. DEFIBRILLATOR [Concomitant]
  4. LATANOPROST. [Concomitant]
     Active Substance: LATANOPROST
  5. AMIODARONE [Suspect]
     Active Substance: AMIODARONE
     Indication: CARDIAC DISORDER
     Dosage: 2 PILLS DAILY
     Route: 048
     Dates: start: 20150611, end: 20150814
  6. METOPROLOL [Concomitant]
     Active Substance: METOPROLOL
  7. TIMOLOL MALEATE. [Concomitant]
     Active Substance: TIMOLOL MALEATE
  8. LOVASTATIN. [Concomitant]
     Active Substance: LOVASTATIN
  9. WARFARIN [Concomitant]
     Active Substance: WARFARIN
  10. DOXAZOSIN [Concomitant]
     Active Substance: DOXAZOSIN\DOXAZOSIN MESYLATE

REACTIONS (1)
  - Tremor [None]

NARRATIVE: CASE EVENT DATE: 20150814
